FAERS Safety Report 10392295 (Version 1)
Quarter: 2014Q3

REPORT INFORMATION
  Report Type: Report from Study
  Country: ES (occurrence: ES)
  Receive Date: 20140819
  Receipt Date: 20140819
  Transmission Date: 20150326
  Serious: Yes (Hospitalization)
  Sender: FDA-Public Use
  Company Number: ES-ROCHE-1449297

PATIENT
  Age: 62 Year
  Sex: Male
  Weight: 54 kg

DRUGS (11)
  1. ENALAPRIL [Concomitant]
     Active Substance: ENALAPRIL
     Dosage: BREAKFAST
     Route: 048
     Dates: start: 20130912, end: 20130912
  2. ENALAPRIL [Concomitant]
     Active Substance: ENALAPRIL
     Dosage: BREAKFAST
     Route: 048
     Dates: start: 20130912, end: 20131231
  3. CAPECITABINE [Suspect]
     Active Substance: CAPECITABINE
     Indication: COLON CANCER
     Dosage: 1650MG/12H?THE PATIENT RECEIVED 2 CYCLES AND START DATE OF LAST CYCLE WAS 13/AUG/2013 AND ON 27/AUG/
     Route: 048
     Dates: start: 20130723
  4. GLUCOSE/SODIUM CHLORIDE [Concomitant]
     Active Substance: DEXTROSE
     Route: 042
     Dates: start: 20130912, end: 20130912
  5. PARACETAMOL [Concomitant]
     Active Substance: ACETAMINOPHEN
     Route: 042
     Dates: start: 20130912, end: 20130912
  6. GLUCOSE/SODIUM CHLORIDE [Concomitant]
     Active Substance: DEXTROSE
     Dosage: EVERY 6 HOURS
     Route: 042
     Dates: start: 20130912, end: 20131231
  7. BEVACIZUMAB [Suspect]
     Active Substance: BEVACIZUMAB
     Indication: COLON CANCER
     Dosage: ON 13/AUG/2013 LAST DOSE PRIOR TO SAE WAS RECEIVED.?THE PATIENT RECEIVED 2 CYCLES AND START DATE OF
     Route: 042
     Dates: start: 20130723
  8. OMEPRAZOLE. [Concomitant]
     Active Substance: OMEPRAZOLE
     Dosage: BREAKFAST
     Route: 048
     Dates: start: 20130912, end: 20131231
  9. OXALIPLATIN. [Suspect]
     Active Substance: OXALIPLATIN
     Indication: COLON CANCER
     Dosage: ON 13/AUG/2013, HE STARTED LAST CYCLE AND LAST DOSE PRIOR TO SAE WAS RECEIVED. THE PATIENT RECEIVED
     Route: 042
     Dates: start: 20130723
  10. DEXAMETHASONE. [Concomitant]
     Active Substance: DEXAMETHASONE
     Route: 042
     Dates: start: 20130912, end: 20130912
  11. GLUCOSE/SODIUM CHLORIDE [Concomitant]
     Active Substance: DEXTROSE
     Dosage: EVERY 6 HOURS
     Route: 042
     Dates: start: 20130912, end: 20130912

REACTIONS (1)
  - Enteritis [Recovered/Resolved]

NARRATIVE: CASE EVENT DATE: 20130912
